FAERS Safety Report 8110428-4 (Version None)
Quarter: 2012Q1

REPORT INFORMATION
  Report Type: 
  Country: None (occurrence: None)
  Receive Date: 20120202
  Receipt Date: 20120125
  Transmission Date: 20120608
  Serious: No
  Sender: FDA-Public Use
  Company Number: US-B.I. PHARMACEUTICALS,INC./RIDGEFIELD-2012-BP-01527BP

PATIENT
  Sex: Male

DRUGS (11)
  1. AMIODARONE HCL [Concomitant]
     Indication: CARDIAC FAILURE CONGESTIVE
     Dosage: 100 MG
     Route: 048
  2. LASIX [Concomitant]
     Indication: CARDIAC FAILURE CONGESTIVE
     Dosage: 40 MG
     Route: 048
  3. LANTUS [Concomitant]
     Indication: DIABETES MELLITUS
     Dosage: 40 U
     Route: 058
  4. HYDRALAZINE HCL [Concomitant]
     Indication: HYPERTENSION
     Dosage: 100 MG
     Route: 048
  5. SIMVASTATIN [Concomitant]
     Indication: BLOOD CHOLESTEROL INCREASED
     Dosage: 2.5 MG
     Route: 048
  6. CARTIA XT [Concomitant]
     Indication: CARDIAC DISORDER
     Dosage: 120 MG
     Route: 048
     Dates: start: 20110501
  7. METFORMIN HCL [Concomitant]
     Indication: DIABETES MELLITUS
     Dosage: 2000 MG
     Route: 048
  8. LISINOPRIL [Concomitant]
     Indication: HYPERTENSION
     Dosage: 2.5 MG
     Route: 048
  9. DIGOZIN [Concomitant]
     Indication: CARDIAC FAILURE CONGESTIVE
     Dosage: 250 MCG
     Route: 048
  10. PRADAXA [Suspect]
     Indication: ATRIAL FIBRILLATION
     Dosage: 300 MG
     Route: 048
     Dates: start: 20111123
  11. METOPROLOL [Concomitant]
     Indication: HYPERTENSION
     Dosage: 50 MG
     Route: 048

REACTIONS (1)
  - DIZZINESS [None]
